FAERS Safety Report 14987896 (Version 1)
Quarter: 2018Q2

REPORT INFORMATION
  Report Type: Report from Study
  Country: US (occurrence: US)
  Receive Date: 20180608
  Receipt Date: 20180608
  Transmission Date: 20180711
  Serious: No
  Sender: FDA-Public Use
  Company Number: US-ROCHE-2134924

PATIENT
  Age: 45 Year
  Sex: Female
  Weight: 70.37 kg

DRUGS (2)
  1. OCREVUS [Suspect]
     Active Substance: OCRELIZUMAB
     Dosage: FULL DOSE
     Route: 042
     Dates: start: 201802
  2. OCREVUS [Suspect]
     Active Substance: OCRELIZUMAB
     Indication: RELAPSING-REMITTING MULTIPLE SCLEROSIS
     Dosage: SPLIT DOSE
     Route: 042
     Dates: start: 201708

REACTIONS (10)
  - Blood blister [Unknown]
  - Infection [Unknown]
  - Feeling hot [Unknown]
  - Pruritus [Not Recovered/Not Resolved]
  - Weight increased [Unknown]
  - Blister [Unknown]
  - Rash [Recovered/Resolved]
  - Scar [Not Recovered/Not Resolved]
  - Blister infected [Unknown]
  - Erythema [Unknown]

NARRATIVE: CASE EVENT DATE: 201802
